FAERS Safety Report 24880279 (Version 2)
Quarter: 2025Q1

REPORT INFORMATION
  Report Type: Spontaneous
  Country: FR (occurrence: FR)
  Receive Date: 20250123
  Receipt Date: 20250313
  Transmission Date: 20250409
  Serious: Yes (Other)
  Sender: AMERICAN REGENT
  Company Number: FR-AMERICAN REGENT INC-2025000327

PATIENT
  Age: 53 Year
  Sex: Male
  Weight: 119 kg

DRUGS (3)
  1. FERINJECT [Suspect]
     Active Substance: FERRIC CARBOXYMALTOSE
     Indication: Anaemia
     Route: 042
     Dates: start: 20241212, end: 20241212
  2. TECHNETIUM TC-99M DEPREOTIDE [Suspect]
     Active Substance: TECHNETIUM TC-99M DEPREOTIDE
     Indication: Bone scan
     Route: 042
     Dates: start: 20241213, end: 20241213
  3. FERROUS SULFATE [Suspect]
     Active Substance: FERROUS SULFATE
     Indication: Anaemia
     Route: 048
     Dates: start: 20240201

REACTIONS (1)
  - Radioisotope scan abnormal [Recovered/Resolved]

NARRATIVE: CASE EVENT DATE: 20241213
